FAERS Safety Report 12561471 (Version 1)
Quarter: 2016Q3

REPORT INFORMATION
  Report Type: Spontaneous
  Country: US (occurrence: US)
  Receive Date: 20160715
  Receipt Date: 20160715
  Transmission Date: 20161109
  Serious: No
  Sender: FDA-Public Use
  Company Number: US-ALARA PHARMACEUTICAL CORPORATION-1055106

PATIENT
  Age: 78 Year
  Sex: Female
  Weight: 68.18 kg

DRUGS (1)
  1. LEVO-T [Suspect]
     Active Substance: LEVOTHYROXINE SODIUM
     Indication: THYROID DISORDER
     Route: 048
     Dates: start: 20150601, end: 20150816

REACTIONS (2)
  - Madarosis [None]
  - Alopecia [Not Recovered/Not Resolved]
